FAERS Safety Report 18425299 (Version 1)
Quarter: 2020Q4

REPORT INFORMATION
  Report Type: Spontaneous
  Country: US (occurrence: US)
  Receive Date: 20201023
  Receipt Date: 20201023
  Transmission Date: 20210114
  Serious: Yes (Hospitalization)
  Sender: FDA-Public Use
  Company Number: None

PATIENT
  Age: 25 Year
  Sex: Female
  Weight: 76.5 kg

DRUGS (1)
  1. INVEGA SUSTENNA [Suspect]
     Active Substance: PALIPERIDONE PALMITATE
     Dates: start: 20200602

REACTIONS (5)
  - Product complaint [None]
  - Apathy [None]
  - Product quality control issue [None]
  - Neurotransmitter level altered [None]
  - Cognitive disorder [None]

NARRATIVE: CASE EVENT DATE: 20200602
